FAERS Safety Report 11693223 (Version 1)
Quarter: 2015Q4

REPORT INFORMATION
  Report Type: Spontaneous
  Country: US (occurrence: None)
  Receive Date: 20151102
  Receipt Date: 20151102
  Transmission Date: 20160304
  Serious: Yes (Other)
  Sender: FDA-Public Use
  Company Number: None

PATIENT
  Age: 57 Year
  Sex: Female
  Weight: 61.24 kg

DRUGS (5)
  1. LEVOTHYROXIN [Concomitant]
     Active Substance: LEVOTHYROXINE
  2. LOSARTAN. [Suspect]
     Active Substance: LOSARTAN
     Dosage: 2 PILLS
     Route: 048
  3. LEVIMER [Concomitant]
  4. BENICAR [Concomitant]
     Active Substance: OLMESARTAN MEDOXOMIL
  5. SIMVASTATIN. [Concomitant]
     Active Substance: SIMVASTATIN

REACTIONS (3)
  - Blood glucose increased [None]
  - Product substitution issue [None]
  - Blood glucose decreased [None]

NARRATIVE: CASE EVENT DATE: 20150930
